FAERS Safety Report 12629590 (Version 3)
Quarter: 2018Q4

REPORT INFORMATION
  Report Type: Spontaneous
  Country: JP (occurrence: JP)
  Receive Date: 20160808
  Receipt Date: 20181130
  Transmission Date: 20190204
  Serious: Yes (Hospitalization, Other)
  Sender: FDA-Public Use
  Company Number: JP-GLAXOSMITHKLINE-JP2016JPN110968

PATIENT
  Age: 79 Year
  Sex: Female

DRUGS (1)
  1. VALACICLOVIR HYDROCHLORIDE [Suspect]
     Active Substance: VALACYCLOVIR HYDROCHLORIDE
     Indication: HERPES ZOSTER
     Dosage: 250 MG, BID
     Route: 048

REACTIONS (6)
  - Toxic encephalopathy [Unknown]
  - Altered state of consciousness [Recovering/Resolving]
  - Decreased appetite [Unknown]
  - Mobility decreased [Unknown]
  - Toxicity to various agents [Unknown]
  - Depressed level of consciousness [Unknown]
